FAERS Safety Report 19321114 (Version 1)
Quarter: 2021Q2

REPORT INFORMATION
  Report Type: Report from Study
  Country: ES (occurrence: ES)
  Receive Date: 20210527
  Receipt Date: 20210527
  Transmission Date: 20210717
  Serious: Yes (Other)
  Sender: FDA-Public Use
  Company Number: ES-TAKEDA-2021TUS033735

PATIENT

DRUGS (6)
  1. MELFLUFEN [Suspect]
     Active Substance: MELPHALAN FLUFENAMIDE HYDROCHLORIDE
     Dosage: 40 MILLIGRAM
     Route: 042
  2. DEXAMETHASONE. [Suspect]
     Active Substance: DEXAMETHASONE
     Dosage: 20 MILLIGRAM, 1/WEEK
     Route: 065
  3. BORTEZOMIB. [Suspect]
     Active Substance: BORTEZOMIB
     Indication: PLASMA CELL MYELOMA REFRACTORY
     Dosage: 1.3 MILLIGRAM/SQ. METER
     Route: 058
  4. MELFLUFEN [Suspect]
     Active Substance: MELPHALAN FLUFENAMIDE HYDROCHLORIDE
     Indication: PLASMA CELL MYELOMA REFRACTORY
     Dosage: 30 MILLIGRAM
     Route: 042
  5. MELFLUFEN [Suspect]
     Active Substance: MELPHALAN FLUFENAMIDE HYDROCHLORIDE
     Dosage: 20 MILLIGRAM
     Route: 042
  6. DEXAMETHASONE. [Suspect]
     Active Substance: DEXAMETHASONE
     Indication: PLASMA CELL MYELOMA REFRACTORY
     Dosage: 40 MILLIGRAM, 1/WEEK
     Route: 065

REACTIONS (1)
  - Plasma cell myeloma [Unknown]
